FAERS Safety Report 6018862-3 (Version None)
Quarter: 2008Q4

REPORT INFORMATION
  Report Type: 
  Country: None (occurrence: None)
  Receive Date: 20081221
  Receipt Date: 20081221
  Transmission Date: 20090506
  Serious: Yes (Hospitalization)
  Sender: FDA-Public Use
  Company Number: None

PATIENT
  Age: 55 Year
  Sex: Male
  Weight: 105 kg

DRUGS (1)
  1. CETUXIMAB 100MG VIAL BMS [Suspect]
     Indication: HEAD AND NECK CANCER
     Dosage: 880MG X1 IV CENTRAL LINE
     Route: 042
     Dates: start: 20081216

REACTIONS (4)
  - CONVULSION [None]
  - HEART RATE INCREASED [None]
  - HYPOTENSION [None]
  - INFUSION RELATED REACTION [None]
